FAERS Safety Report 6682618-9 (Version None)
Quarter: 2010Q2

REPORT INFORMATION
  Report Type: 
  Country: None (occurrence: None)
  Receive Date: 20100415
  Receipt Date: 20100406
  Transmission Date: 20101027
  Serious: Yes (Other)
  Sender: FDA-Public Use
  Company Number: PHHY2010US21529

PATIENT
  Sex: Female

DRUGS (6)
  1. RECLAST [Suspect]
     Dosage: UNK
     Dates: start: 20090327
  2. CHEMOTHERAPEUTICS NOS [Concomitant]
  3. SIMVASTATIN [Concomitant]
     Dosage: 20 MG, UNK
  4. FISH OIL [Concomitant]
  5. CALCIUM [Concomitant]
     Dosage: 1800 MG, UNK
  6. VITAMIN D [Concomitant]

REACTIONS (1)
  - TOOTH DISORDER [None]
